FAERS Safety Report 12923770 (Version 1)
Quarter: 2016Q4

REPORT INFORMATION
  Report Type: Spontaneous
  Country: FR (occurrence: FR)
  Receive Date: 20161109
  Receipt Date: 20161109
  Transmission Date: 20170207
  Serious: Yes (Other)
  Sender: FDA-Public Use
  Company Number: FR-CONCORDIA PHARMACEUTICALS INC.-E2B_00007905

PATIENT
  Age: 78 Year
  Sex: Male

DRUGS (11)
  1. ALFUZOSIN [Suspect]
     Active Substance: ALFUZOSIN
     Indication: PROSTATIC ADENOMA
     Route: 048
     Dates: start: 20160213, end: 20160322
  2. AMLOR [Suspect]
     Active Substance: AMLODIPINE BESYLATE
     Indication: HYPERTENSION
     Route: 048
     Dates: start: 20160215, end: 20160322
  3. OFLOCET [Suspect]
     Active Substance: OFLOXACIN
     Indication: PRODUCT USED FOR UNKNOWN INDICATION
     Route: 048
     Dates: start: 20160216, end: 20160225
  4. OFLOCET [Suspect]
     Active Substance: OFLOXACIN
     Dates: start: 20160311, end: 20160322
  5. FORLAX [Concomitant]
     Active Substance: POLYETHYLENE GLYCOL 4000
  6. PARACETAMOL [Concomitant]
     Active Substance: ACETAMINOPHEN
  7. ALDACTAZINE [Concomitant]
     Active Substance: ALTHIAZIDE\SPIRONOLACTONE
  8. FLUDEX [Suspect]
     Active Substance: INDAPAMIDE
     Dates: start: 20160315, end: 20160322
  9. LEXOMIL [Concomitant]
     Active Substance: BROMAZEPAM
  10. FLUDEX [Suspect]
     Active Substance: INDAPAMIDE
     Indication: PRODUCT USED FOR UNKNOWN INDICATION
     Route: 048
     Dates: start: 20160219, end: 20160311
  11. CEFOTAXIME [Concomitant]
     Active Substance: CEFOTAXIME SODIUM

REACTIONS (3)
  - Neutropenia [Recovered/Resolved]
  - Thrombocytopenia [Recovering/Resolving]
  - Leukopenia [Recovering/Resolving]

NARRATIVE: CASE EVENT DATE: 20160311
